FAERS Safety Report 24801605 (Version 1)
Quarter: 2025Q1

REPORT INFORMATION
  Report Type: Spontaneous
  Country: US (occurrence: US)
  Receive Date: 20250102
  Receipt Date: 20250102
  Transmission Date: 20250409
  Serious: No
  Sender: PFIZER
  Company Number: US-PFIZER INC-PV202400168219

PATIENT
  Age: 71 Year
  Sex: Female

DRUGS (1)
  1. RIFABUTIN [Suspect]
     Active Substance: RIFABUTIN

REACTIONS (10)
  - Pulmonary mass [Unknown]
  - Asthma [Unknown]
  - Osteoporosis [Unknown]
  - Fatigue [Not Recovered/Not Resolved]
  - Diarrhoea [Unknown]
  - Abdominal discomfort [Unknown]
  - Arthralgia [Unknown]
  - Weight decreased [Unknown]
  - Myalgia [Unknown]
  - Cough [Unknown]
